FAERS Safety Report 5328379-7 (Version None)
Quarter: 2007Q2

REPORT INFORMATION
  Report Type: 
  Country: None (occurrence: None)
  Receive Date: 20070518
  Receipt Date: 20070509
  Transmission Date: 20071010
  Serious: Yes (Other)
  Sender: FDA-Public Use
  Company Number: US-JNJFOC-20070502567

PATIENT
  Age: 7 Decade
  Sex: Male

DRUGS (2)
  1. REMICADE [Suspect]
     Indication: INFLAMMATORY BOWEL DISEASE
     Dosage: 3 INFUSIONS ON UNSPECIFIED DATES.
     Route: 042
  2. PREDNISONE TAB [Concomitant]

REACTIONS (1)
  - CHRONIC MYELOID LEUKAEMIA [None]
